FAERS Safety Report 8550960-2 (Version None)
Quarter: 2012Q3

REPORT INFORMATION
  Report Type: 
  Country: None (occurrence: None)
  Receive Date: 20120730
  Receipt Date: 20120724
  Transmission Date: 20120928
  Serious: Yes (Other)
  Sender: FDA-Public Use
  Company Number: JP-PFIZER INC-2012127438

PATIENT
  Age: 46 Year
  Sex: Female

DRUGS (6)
  1. APHTASOLON [Concomitant]
     Dosage: UNK
  2. ZITHROMAX [Suspect]
     Indication: PHARYNGITIS
     Dosage: 500 MG, 1X/DAY
     Route: 048
     Dates: start: 20120330, end: 20120401
  3. ACETYLSALICYLIC ACID/CAFFEINE/PARACETAMOL/SALICYLAMIDE [Suspect]
     Indication: PHARYNGITIS
     Dosage: 1 G, 3X/DAY
     Route: 048
     Dates: start: 20120330, end: 20120401
  4. OZEX [Concomitant]
     Dosage: 150 MG, 3X/DAY
     Route: 048
     Dates: start: 20120302, end: 20120306
  5. GENTAMICIN SULFATE [Concomitant]
     Dosage: UNK
  6. LOXONIN [Suspect]
     Indication: PHARYNGITIS
     Dosage: 1 DF, 3X/DAY
     Route: 048
     Dates: start: 20120330, end: 20120401

REACTIONS (1)
  - STEVENS-JOHNSON SYNDROME [None]
